FAERS Safety Report 4653237-0 (Version None)
Quarter: 2005Q2

REPORT INFORMATION
  Report Type: 
  Country: None (occurrence: None)
  Receive Date: 20050503
  Receipt Date: 20050503
  Transmission Date: 20051028
  Serious: Yes (Hospitalization)
  Sender: FDA-Public Use
  Company Number: None

PATIENT
  Age: 76 Year
  Sex: Female
  Weight: 78.9259 kg

DRUGS (11)
  1. AVASTIN [Suspect]
     Indication: COLON CANCER
     Dosage: 200 MG -} 300 MG -} 400 MG IV Q 2 WEEKS
     Route: 042
     Dates: start: 20050321, end: 20050418
  2. OXALIPLATIN [Suspect]
     Indication: COLON CANCER
     Dosage: 100MG -} 140MG -} 160 MG IV Q 2 WEEKS
     Route: 042
     Dates: start: 20050321, end: 20050418
  3. LEUCOVORIN CALCIUM [Suspect]
     Indication: COLON CANCER
     Dosage: 200 MG -} 760 MG -} 760 MG IV Q 2 WEEKS
     Route: 042
     Dates: start: 20050321, end: 20050418
  4. 5FU BOLUS + CONTINUOUS INFUSION X 46 HRS [Suspect]
     Indication: COLON CANCER
     Dosage: BOLUS:  500 MG -} 760 -} IVP Q 2 WKS   CIF: 2400MG -} 4560 MG -} 4560 MG
     Route: 040
     Dates: start: 20050321, end: 20050418
  5. DEXAMETHASONE [Concomitant]
  6. ALOXI [Concomitant]
  7. ZOFRAN [Concomitant]
  8. MAGSULFATE 500MG + CALCIUM GLUCONATE [Concomitant]
  9. PROCARDIA XL [Concomitant]
  10. METOLAZONE [Concomitant]
  11. COMPAZINE [Concomitant]

REACTIONS (7)
  - DEHYDRATION [None]
  - DIARRHOEA [None]
  - FEBRILE NEUTROPENIA [None]
  - NAUSEA [None]
  - POST PROCEDURAL DIARRHOEA [None]
  - PYREXIA [None]
  - VOMITING [None]
